FAERS Safety Report 7729245-X (Version None)
Quarter: 2011Q3

REPORT INFORMATION
  Report Type: 
  Country: None (occurrence: None)
  Receive Date: 20110906
  Receipt Date: 20110906
  Transmission Date: 20111222
  Serious: Yes (Other)
  Sender: FDA-Public Use
  Company Number: US-ABBOTT-11P-163-0849229-00

PATIENT
  Age: 46 Year
  Sex: Male

DRUGS (10)
  1. ATAZANAVIR [Suspect]
     Indication: HIV INFECTION
  2. RITONAVIR [Suspect]
     Indication: HIV INFECTION
  3. ATAZANAVIR [Suspect]
  4. RITONAVIR [Suspect]
  5. LAMIVUDINE [Suspect]
     Indication: HIV INFECTION
  6. TENOFOVIR [Suspect]
  7. LAMIVUDINE [Suspect]
  8. TRIMETHOPRIM + SULFAMETHOXAZOLE [Concomitant]
     Indication: PRODUCT USED FOR UNKNOWN INDICATION
  9. TENOFOVIR [Suspect]
     Indication: HIV INFECTION
  10. EMTRICITABINE AND TENOFOVIR DISOPROXIL FUMARATE [Suspect]
     Indication: HIV INFECTION

REACTIONS (2)
  - NEUROSYPHILIS [None]
  - CEREBROVASCULAR ACCIDENT [None]
